FAERS Safety Report 7880539-7 (Version None)
Quarter: 2011Q4

REPORT INFORMATION
  Report Type: 
  Country: None (occurrence: None)
  Receive Date: 20111101
  Receipt Date: 20111017
  Transmission Date: 20120403
  Serious: Yes (Death)
  Sender: FDA-Public Use
  Company Number: DE-UCBSA-021537

PATIENT
  Age: 85 Year
  Sex: Female
  Weight: 60 kg

DRUGS (6)
  1. BERITHYROX [Concomitant]
     Route: 048
  2. VERAPAMIL [Concomitant]
     Dosage: SINGLE DOSE 240
     Route: 048
     Dates: end: 20101102
  3. NEUPRO [Suspect]
     Indication: RESTLESS LEGS SYNDROME
     Dates: start: 20101027
  4. ASPIRIN [Concomitant]
     Route: 048
  5. LYRICA [Concomitant]
     Dosage: SINGLE DOSE 150
     Route: 048
     Dates: end: 20101102
  6. FUROSEMIDE [Concomitant]
     Dosage: SINGLE DOSE 40
     Route: 048

REACTIONS (4)
  - DIABETES MELLITUS INADEQUATE CONTROL [None]
  - HYPOKALAEMIA [None]
  - ILEUS [None]
  - PNEUMONIA [None]
